FAERS Safety Report 17963202 (Version 1)
Quarter: 2020Q2

REPORT INFORMATION
  Report Type: Spontaneous
  Country: GB (occurrence: GB)
  Receive Date: 20200630
  Receipt Date: 20200630
  Transmission Date: 20200714
  Serious: Yes (Hospitalization)
  Sender: FDA-Public Use
  Company Number: GB-VERTEX PHARMACEUTICALS-2020-013716

PATIENT
  Sex: Female

DRUGS (1)
  1. KALYDECO [Suspect]
     Active Substance: IVACAFTOR
     Indication: CYSTIC FIBROSIS
     Dosage: 150 MG, BID
     Route: 048

REACTIONS (1)
  - Hospitalisation [Not Recovered/Not Resolved]
